FAERS Safety Report 8456250-0 (Version None)
Quarter: 2012Q2

REPORT INFORMATION
  Report Type: 
  Country: None (occurrence: None)
  Receive Date: 20120323
  Receipt Date: 20110824
  Transmission Date: 20120825
  Serious: Yes (Other)
  Sender: FDA-Public Use
  Company Number: 163-21880-11083026

PATIENT
  Age: 66 Year
  Sex: Male
  Weight: 66.6788 kg

DRUGS (14)
  1. FLONASE [Concomitant]
  2. REVLIMID [Suspect]
     Indication: MULTIPLE MYELOMA
     Dosage: 25 MG, QD X 21 DAYS, PO
     Route: 048
     Dates: start: 20110401
  3. MOTRIM (TRIMETHOPRIM) [Concomitant]
  4. PROVENTIL [Concomitant]
  5. ASMANEX TWISTHALER [Concomitant]
  6. CENTRUM SILVER (CENTRUM SILVER) [Concomitant]
  7. ENALAPRIL MALEATE [Concomitant]
  8. VITAMIN B (VITAMIN B) [Concomitant]
  9. AMOX (AMOXICILLIN) [Concomitant]
  10. FORADIL [Concomitant]
  11. IRON (IRON) [Concomitant]
  12. NEXIUM [Concomitant]
  13. LACTOBACILLUS (LACTOBACILLUS ACIDOPHILUS) [Concomitant]
  14. SIMVASTATIN [Concomitant]

REACTIONS (2)
  - COUGH [None]
  - RIB FRACTURE [None]
